FAERS Safety Report 24745601 (Version 1)
Quarter: 2024Q4

REPORT INFORMATION
  Report Type: Spontaneous
  Country: CN (occurrence: CN)
  Receive Date: 20241218
  Receipt Date: 20241218
  Transmission Date: 20250115
  Serious: Yes (Life-Threatening)
  Sender: ABBVIE
  Company Number: CN-ABBVIE-6046050

PATIENT
  Age: 34 Year
  Sex: Male

DRUGS (1)
  1. RINVOQ [Suspect]
     Active Substance: UPADACITINIB
     Indication: Product used for unknown indication
     Dosage: FORM STRENGTH: 15 MILLIGRAM
     Route: 048
     Dates: start: 20240704, end: 20240928

REACTIONS (12)
  - Cerebral infarction [Recovering/Resolving]
  - Erythema [Unknown]
  - Anisocoria [Unknown]
  - Pupillary reflex impaired [Unknown]
  - Skin haemorrhage [Unknown]
  - Respiration abnormal [Unknown]
  - Abdominal tenderness [Unknown]
  - Muscular weakness [Unknown]
  - Facial paralysis [Unknown]
  - Dyskinesia [Unknown]
  - Skin exfoliation [Unknown]
  - Pustule [Unknown]

NARRATIVE: CASE EVENT DATE: 20240101
